FAERS Safety Report 7705236-X (Version None)
Quarter: 2011Q3

REPORT INFORMATION
  Report Type: 
  Country: None (occurrence: None)
  Receive Date: 20110818
  Receipt Date: 20110802
  Transmission Date: 20111222
  Serious: Yes (Death, Hospitalization)
  Sender: FDA-Public Use
  Company Number: 2011MA010839

PATIENT
  Age: 64 Year
  Sex: Female

DRUGS (7)
  1. VINORELBINE [Suspect]
     Indication: LUNG ADENOCARCINOMA
     Dosage: 102 MG/BODY
  2. CARBOPLATIN [Suspect]
     Indication: LUNG ADENOCARCINOMA
     Dosage: 2400 MG/BODY
  3. DOCETAXEL [Suspect]
     Indication: LUNG ADENOCARCINOMA
     Dosage: 556 MG/BODY
  4. GEMCITABINE [Suspect]
     Indication: LUNG ADENOCARCINOMA
     Dosage: 18970 MG/BODY
  5. PACLITAXEL [Suspect]
     Indication: LUNG ADENOCARCINOMA
     Dosage: 920 MG/BODY
  6. GEFITINIB (GEFITINIB) [Suspect]
     Indication: LUNG ADENOCARCINOMA
     Dosage: 3250 MG/BODY
  7. CISPLATIN [Suspect]
     Indication: LUNG ADENOCARCINOMA
     Dosage: 324 MG/BODY

REACTIONS (7)
  - ACUTE MYELOID LEUKAEMIA [None]
  - METASTASES TO CENTRAL NERVOUS SYSTEM [None]
  - NEOPLASM PROGRESSION [None]
  - LUNG ADENOCARCINOMA [None]
  - BLOOD ALKALINE PHOSPHATASE INCREASED [None]
  - BLOOD LACTATE DEHYDROGENASE INCREASED [None]
  - PNEUMONITIS [None]
